FAERS Safety Report 6999311-5 (Version None)
Quarter: 2010Q3

REPORT INFORMATION
  Report Type: 
  Country: None (occurrence: None)
  Receive Date: 20100920
  Receipt Date: 20070719
  Transmission Date: 20110219
  Serious: Yes (Other)
  Sender: FDA-Public Use
  Company Number: US-ASTRAZENECA-2007UW03792

PATIENT
  Age: 31 Year
  Sex: Male
  Weight: 112.5 kg

DRUGS (20)
  1. SEROQUEL [Suspect]
     Indication: SCHIZOPHRENIA
     Dosage: 50-300 MG
     Route: 048
     Dates: start: 19990101, end: 20060101
  2. SEROQUEL [Suspect]
     Indication: DEPRESSION
     Dosage: 50-300 MG
     Route: 048
     Dates: start: 19990101, end: 20060101
  3. SEROQUEL [Suspect]
     Route: 048
     Dates: start: 20010425
  4. SEROQUEL [Suspect]
     Route: 048
     Dates: start: 20010425
  5. ZYPREXA [Concomitant]
     Indication: SCHIZOPHRENIA
     Dates: start: 20020101, end: 20040101
  6. ZYPREXA [Concomitant]
     Indication: DEPRESSION
     Dates: start: 20020101, end: 20040101
  7. RISPERDAL [Concomitant]
     Indication: SCHIZOPHRENIA
     Dates: start: 20020101, end: 20040101
  8. RISPERDAL [Concomitant]
     Indication: DEPRESSION
     Dates: start: 20020101, end: 20040101
  9. RISPERDAL [Concomitant]
     Dates: start: 20040101
  10. RISPERDAL [Concomitant]
     Dates: start: 20040101
  11. GEODON [Concomitant]
  12. HALDOL [Concomitant]
     Route: 048
     Dates: start: 20010425
  13. HALDOL [Concomitant]
  14. THORAZINE [Concomitant]
     Dates: start: 20060101
  15. GLUCOPHAGE XR [Concomitant]
     Dosage: 500 MG - 1500 MG
     Route: 048
     Dates: start: 20030905
  16. VERAPAMIL ER [Concomitant]
     Route: 048
     Dates: start: 20050131
  17. MONOPRIL [Concomitant]
     Route: 048
     Dates: start: 20010523
  18. ATENOLOL [Concomitant]
     Route: 048
     Dates: start: 20050131
  19. PREVACID [Concomitant]
     Route: 048
     Dates: start: 20010523
  20. LANTUS [Concomitant]
     Dosage: 3 - 10 UNITS
     Dates: start: 20061206

REACTIONS (4)
  - BLOOD TRIGLYCERIDES INCREASED [None]
  - HYPERGLYCAEMIA [None]
  - TYPE 2 DIABETES MELLITUS [None]
  - VISION BLURRED [None]
